FAERS Safety Report 14962654 (Version 1)
Quarter: 2018Q2

REPORT INFORMATION
  Report Type: Spontaneous
  Country: IT (occurrence: IT)
  Receive Date: 20180601
  Receipt Date: 20180601
  Transmission Date: 20180711
  Serious: Yes (Hospitalization)
  Sender: FDA-Public Use
  Company Number: IT-JNJFOC-20180540534

PATIENT
  Age: 77 Year
  Sex: Male
  Weight: 80 kg

DRUGS (13)
  1. LOPERAMIDE [Suspect]
     Active Substance: LOPERAMIDE
     Indication: DIARRHOEA
     Route: 065
  2. PLACEBO [Suspect]
     Active Substance: UNSPECIFIED INGREDIENT
     Indication: IRON OVERLOAD
     Route: 048
     Dates: start: 20110926, end: 20111214
  3. PLACEBO [Suspect]
     Active Substance: UNSPECIFIED INGREDIENT
     Indication: IRON OVERLOAD
     Route: 048
     Dates: start: 20121001, end: 20130616
  4. PLACEBO [Suspect]
     Active Substance: UNSPECIFIED INGREDIENT
     Indication: IRON OVERLOAD
     Route: 048
     Dates: start: 20130709, end: 20130725
  5. PLACEBO [Suspect]
     Active Substance: UNSPECIFIED INGREDIENT
     Indication: IRON OVERLOAD
     Route: 048
     Dates: start: 20110509, end: 20110925
  6. LOPERAMIDE [Suspect]
     Active Substance: LOPERAMIDE
     Route: 065
  7. PLACEBO [Suspect]
     Active Substance: UNSPECIFIED INGREDIENT
     Indication: IRON OVERLOAD
     Route: 048
     Dates: start: 20101223, end: 20110103
  8. PLACEBO [Suspect]
     Active Substance: UNSPECIFIED INGREDIENT
     Indication: IRON OVERLOAD
     Route: 048
     Dates: start: 20110104, end: 20110508
  9. PLACEBO [Suspect]
     Active Substance: UNSPECIFIED INGREDIENT
     Indication: IRON OVERLOAD
     Route: 048
     Dates: start: 20111219, end: 20120103
  10. PLACEBO [Suspect]
     Active Substance: UNSPECIFIED INGREDIENT
     Indication: IRON OVERLOAD
     Route: 048
     Dates: start: 20120320, end: 20120930
  11. PLACEBO [Suspect]
     Active Substance: UNSPECIFIED INGREDIENT
     Indication: IRON OVERLOAD
     Route: 048
     Dates: start: 20130622, end: 20130708
  12. PLACEBO [Suspect]
     Active Substance: UNSPECIFIED INGREDIENT
     Indication: IRON OVERLOAD
     Route: 048
     Dates: start: 20120117, end: 20120209
  13. PLACEBO [Suspect]
     Active Substance: UNSPECIFIED INGREDIENT
     Indication: IRON OVERLOAD
     Route: 048
     Dates: start: 20131001, end: 20140125

REACTIONS (1)
  - Face oedema [Recovered/Resolved]

NARRATIVE: CASE EVENT DATE: 20140126
